FAERS Safety Report 7717856-7 (Version None)
Quarter: 2011Q3

REPORT INFORMATION
  Report Type: 
  Country: None (occurrence: None)
  Receive Date: 20110830
  Receipt Date: 20110823
  Transmission Date: 20111222
  Serious: Yes (Other)
  Sender: FDA-Public Use
  Company Number: US-PFIZER INC-2011197664

PATIENT
  Age: 39 Year
  Sex: Female

DRUGS (1)
  1. TRAZODONE HCL [Suspect]
     Dosage: 30 G

REACTIONS (4)
  - HYPOTENSION [None]
  - INTESTINAL PERFORATION [None]
  - OVERDOSE [None]
  - INTESTINAL ISCHAEMIA [None]
